FAERS Safety Report 18440720 (Version 1)
Quarter: 2020Q4

REPORT INFORMATION
  Report Type: Spontaneous
  Country: US (occurrence: US)
  Receive Date: 20201029
  Receipt Date: 20201029
  Transmission Date: 20210114
  Serious: Yes (Other)
  Sender: FDA-Public Use
  Company Number: US-ROCHE-2703567

PATIENT
  Sex: Female

DRUGS (2)
  1. ACTEMRA [Suspect]
     Active Substance: TOCILIZUMAB
     Indication: GIANT CELL ARTERITIS
     Dosage: ONGOING: YES, ACTPEN 162MG/0.9M
     Route: 058
     Dates: start: 20200803
  2. ACTEMRA [Suspect]
     Active Substance: TOCILIZUMAB

REACTIONS (9)
  - Vision blurred [Unknown]
  - Dizziness [Unknown]
  - Ocular hyperaemia [Unknown]
  - Lacrimation increased [Unknown]
  - Atrial fibrillation [Unknown]
  - Glassy eyes [Unknown]
  - Tremor [Unknown]
  - Fatigue [Unknown]
  - Hyperhidrosis [Unknown]
